FAERS Safety Report 4749344-4 (Version None)
Quarter: 2005Q3

REPORT INFORMATION
  Report Type: 
  Country: None (occurrence: None)
  Receive Date: 20050819
  Receipt Date: 20050811
  Transmission Date: 20060218
  Serious: Yes (Other)
  Sender: FDA-Public Use
  Company Number: US-ABBOTT-05P-163-0308141-00

PATIENT
  Age: 23 Year
  Sex: Female
  Weight: 56.75 kg

DRUGS (3)
  1. VALPROATE [Suspect]
     Indication: CONVULSION
     Dosage: 750 MG EVERY AM, 500 MG QHS
     Route: 048
  2. OVULEN [Suspect]
     Indication: MENSTRUATION IRREGULAR
     Route: 048
  3. OVULEN [Suspect]
     Indication: MENORRHAGIA

REACTIONS (3)
  - ANTICONVULSANT DRUG LEVEL DECREASED [None]
  - CONVULSION [None]
  - DEPRESSED LEVEL OF CONSCIOUSNESS [None]
